FAERS Safety Report 15659126 (Version 3)
Quarter: 2019Q3

REPORT INFORMATION
  Report Type: Spontaneous
  Country: JP (occurrence: JP)
  Receive Date: 20181127
  Receipt Date: 20190703
  Transmission Date: 20191004
  Serious: Yes (Hospitalization)
  Sender: FDA-Public Use
  Company Number: JP-SA-2018SA320167

PATIENT
  Sex: Female

DRUGS (1)
  1. KEVZARA [Suspect]
     Active Substance: SARILUMAB
     Indication: RHEUMATOID ARTHRITIS
     Dosage: 150 MG/DAY
     Route: 058
     Dates: start: 20181011

REACTIONS (2)
  - Arteriosclerosis [Not Recovered/Not Resolved]
  - Arterial thrombosis [Not Recovered/Not Resolved]
